FAERS Safety Report 4691167-9 (Version None)
Quarter: 2005Q2

REPORT INFORMATION
  Report Type: 
  Country: None (occurrence: None)
  Receive Date: 20050615
  Receipt Date: 20050609
  Transmission Date: 20051028
  Serious: Yes (Hospitalization, Other)
  Sender: FDA-Public Use
  Company Number: US-ABBOTT-05P-163-0302729-00

PATIENT
  Sex: Female
  Weight: 63.56 kg

DRUGS (5)
  1. TARKA [Suspect]
     Indication: BLOOD PRESSURE INCREASED
     Dosage: 2/240MG
     Route: 048
     Dates: start: 20050301, end: 20050608
  2. LEVOTHYROXINE SODIUM [Concomitant]
     Indication: HYPOTHYROIDISM
     Route: 048
  3. ESTROGENS CONJUGATED [Concomitant]
     Indication: HORMONE REPLACEMENT THERAPY
     Route: 048
  4. ISRADIPINE [Concomitant]
     Indication: BLOOD PRESSURE INCREASED
     Route: 048
  5. HYDROCHLOROTHIAZIDE [Concomitant]
     Indication: FLUID RETENTION
     Route: 048

REACTIONS (4)
  - CHOLECYSTITIS [None]
  - HEADACHE [None]
  - RASH PRURITIC [None]
  - URINARY INCONTINENCE [None]
